FAERS Safety Report 7494754-8 (Version None)
Quarter: 2011Q2

REPORT INFORMATION
  Report Type: 
  Country: None (occurrence: None)
  Receive Date: 20110520
  Receipt Date: 20110512
  Transmission Date: 20111010
  Serious: Yes (Other)
  Sender: FDA-Public Use
  Company Number: GB-CEPHALON-2011000303

PATIENT
  Sex: Female

DRUGS (10)
  1. LESTAURTINIB OR PLACEBO [Suspect]
     Indication: ACUTE MYELOID LEUKAEMIA
     Route: 048
     Dates: end: 20110114
  2. DAUNORUBICIN HCL [Suspect]
     Indication: ACUTE MYELOID LEUKAEMIA
     Dates: end: 20110114
  3. POSACONAZOLE [Suspect]
     Dates: start: 20101215
  4. ACYCLOVIR [Concomitant]
     Dates: start: 20101213
  5. OMEPRAZOLE [Concomitant]
     Dates: start: 20101222
  6. ARSENIC TRIOXIDE [Suspect]
     Indication: ACUTE MYELOID LEUKAEMIA
     Route: 041
     Dates: start: 20101127
  7. ATRACURIUM BESYLATE [Suspect]
     Indication: ACUTE MYELOID LEUKAEMIA
     Dates: start: 20101127
  8. METOCLOPRAMIDE [Concomitant]
     Dates: start: 20101219
  9. AMLODIPINE [Concomitant]
     Dates: start: 20101215
  10. CYTARABINE [Suspect]
     Indication: ACUTE MYELOID LEUKAEMIA
     Dates: end: 20110114

REACTIONS (1)
  - BLOOD ALKALINE PHOSPHATASE INCREASED [None]
